FAERS Safety Report 5748895-3 (Version None)
Quarter: 2008Q2

REPORT INFORMATION
  Report Type: 
  Country: None (occurrence: None)
  Receive Date: 20080522
  Receipt Date: 20080515
  Transmission Date: 20081010
  Serious: Yes (Death, Other)
  Sender: FDA-Public Use
  Company Number: E2020-02764-SPO-JP

PATIENT
  Age: 81 Year
  Sex: Male

DRUGS (4)
  1. ARICEPT [Suspect]
     Indication: DEMENTIA
     Dosage: 5 MG, 1 IN 1 D, ORAL
     Route: 048
     Dates: start: 20060427, end: 20080326
  2. NORVASC [Concomitant]
  3. OLMETEC (OLMESARTAN) [Concomitant]
  4. AMOBAN (ZOPICLONE) [Concomitant]

REACTIONS (5)
  - BRADYCARDIA [None]
  - ELECTROCARDIOGRAM QT PROLONGED [None]
  - MALAISE [None]
  - PNEUMONIA [None]
  - SINOATRIAL BLOCK [None]
